FAERS Safety Report 5095366-6 (Version None)
Quarter: 2006Q3

REPORT INFORMATION
  Report Type: 
  Country: None (occurrence: None)
  Receive Date: 20060830
  Receipt Date: 20060814
  Transmission Date: 20061208
  Serious: Yes (Hospitalization)
  Sender: FDA-Public Use
  Company Number: US200608003008

PATIENT
  Age: 77 Year
  Sex: Male

DRUGS (3)
  1. FORTEO [Suspect]
     Indication: OSTEOPOROSIS
     Dates: start: 20050701
  2. FORTEO [Concomitant]
  3. COUMADIN [Concomitant]

REACTIONS (12)
  - ASTHENIA [None]
  - CORNEAL DISORDER [None]
  - DEVICE MIGRATION [None]
  - DYSPNOEA [None]
  - EYE PAIN [None]
  - FATIGUE [None]
  - FIBROSIS [None]
  - PHLEBITIS [None]
  - PULMONARY EMBOLISM [None]
  - PULMONARY THROMBOSIS [None]
  - RETINAL OPERATION [None]
  - VISUAL DISTURBANCE [None]
